FAERS Safety Report 23122706 (Version 2)
Quarter: 2023Q4

REPORT INFORMATION
  Report Type: Report from Study
  Country: DE (occurrence: DE)
  Receive Date: 20231030
  Receipt Date: 20231110
  Transmission Date: 20240110
  Serious: Yes (Death, Hospitalization, Other)
  Sender: FDA-Public Use
  Company Number: DE-CELLTRION INC.-2023DE020910

PATIENT

DRUGS (4)
  1. INFLIXIMAB [Suspect]
     Active Substance: INFLIXIMAB
     Indication: Crohn^s disease
     Dosage: 285 MILLIGRAM, Q2WEEKS
     Route: 058
     Dates: start: 20230824
  2. INFLIXIMAB [Suspect]
     Active Substance: INFLIXIMAB
     Dosage: 280 MILLIGRAM, Q2WEEKS
     Route: 058
     Dates: start: 20230908
  3. INFLIXIMAB [Suspect]
     Active Substance: INFLIXIMAB
     Dosage: 120 MILLIGRAM, Q2WEEKS
     Route: 058
     Dates: start: 20231005
  4. INFLIXIMAB [Suspect]
     Active Substance: INFLIXIMAB
     Dosage: 120 MILLIGRAM, Q2WEEKS
     Route: 058
     Dates: start: 20231019

REACTIONS (3)
  - Brain abscess [Fatal]
  - Sepsis [Fatal]
  - Intentional product use issue [Unknown]

NARRATIVE: CASE EVENT DATE: 20231020
